FAERS Safety Report 21911195 (Version 1)
Quarter: 2023Q1

REPORT INFORMATION
  Report Type: Spontaneous
  Country: US (occurrence: US)
  Receive Date: 20230125
  Receipt Date: 20230125
  Transmission Date: 20230418
  Serious: No
  Sender: FDA-Public Use
  Company Number: US-ABBVIE-4282103

PATIENT
  Age: 11 Year
  Sex: Female

DRUGS (1)
  1. HUMIRA [Suspect]
     Active Substance: ADALIMUMAB
     Indication: Crohn^s disease
     Dosage: UNKNOWN
     Route: 058
     Dates: start: 20230119

REACTIONS (6)
  - Arthralgia [Recovered/Resolved]
  - Adverse drug reaction [Unknown]
  - Anxiety [Unknown]
  - Fear of injection [Unknown]
  - Drug hypersensitivity [Unknown]
  - Dysstasia [Unknown]

NARRATIVE: CASE EVENT DATE: 20230119
